FAERS Safety Report 7355618-3 (Version None)
Quarter: 2011Q1

REPORT INFORMATION
  Report Type: 
  Country: None (occurrence: None)
  Receive Date: 20110316
  Receipt Date: 20110307
  Transmission Date: 20110831
  Serious: Yes (Death, Hospitalization)
  Sender: FDA-Public Use
  Company Number: JP-SANOFI-AVENTIS-2010SA070009

PATIENT
  Age: 72 Year
  Sex: Male
  Weight: 54.3 kg

DRUGS (10)
  1. PYDOXAL [Concomitant]
     Dates: start: 20100609, end: 20101027
  2. HIRUDOID [Concomitant]
     Dates: start: 20100609, end: 20101027
  3. IBUPROFEN [Concomitant]
     Dates: start: 20100629, end: 20100802
  4. ELPLAT [Suspect]
     Indication: COLON CANCER
     Route: 041
     Dates: start: 20100609, end: 20100609
  5. ELPLAT [Suspect]
     Route: 041
     Dates: start: 20100927, end: 20100927
  6. DEXAMETHASONE [Concomitant]
     Dates: start: 20100610, end: 20100827
  7. DAIKENTYUTO [Concomitant]
     Dates: start: 20100610, end: 20100616
  8. FLOMAX [Concomitant]
     Dates: start: 20100729, end: 20100802
  9. MAGNESIUM OXIDE [Concomitant]
     Dates: start: 20100610, end: 20101027
  10. XELODA [Suspect]
     Indication: COLON CANCER
     Route: 048
     Dates: start: 20100609, end: 20101010

REACTIONS (4)
  - SHOCK [None]
  - HAEMORRHAGE [None]
  - GASTROINTESTINAL PERFORATION [None]
  - ANAEMIA [None]
